FAERS Safety Report 6172686-5 (Version None)
Quarter: 2009Q2

REPORT INFORMATION
  Report Type: 
  Country: None (occurrence: None)
  Receive Date: 20090430
  Receipt Date: 20090422
  Transmission Date: 20091009
  Serious: Yes (Other)
  Sender: FDA-Public Use
  Company Number: US-JNJFOC-20061004196

PATIENT
  Sex: Female

DRUGS (5)
  1. RISPERDAL [Suspect]
     Indication: INSOMNIA
  2. RISPERDAL [Suspect]
     Indication: AGORAPHOBIA
  3. RISPERDAL [Suspect]
     Indication: PANIC ATTACK
  4. RISPERDAL [Suspect]
     Indication: ANXIETY
  5. RISPERDAL [Suspect]
     Indication: DEPRESSION

REACTIONS (1)
  - DIABETES MELLITUS [None]
